FAERS Safety Report 9416914 (Version 1)
Quarter: 2013Q3

REPORT INFORMATION
  Report Type: Spontaneous
  Country: US (occurrence: None)
  Receive Date: 20130722
  Receipt Date: 20130722
  Transmission Date: 20140515
  Serious: Yes (Hospitalization, Other)
  Sender: FDA-Public Use
  Company Number: 2013-0437

PATIENT
  Age: 56 Year
  Sex: Male

DRUGS (11)
  1. CARFILZOMIB [Suspect]
     Indication: PLASMA CELL MYELOMA
     Route: 042
     Dates: start: 20130304
  2. ISENTRESS (RALTEGRAVIR POTASSIUM) (RALTEGRAVIR POTASSIUM) [Concomitant]
  3. NORVIR (RITONAVIR) (RITONAVIR) (RITONAVIR) [Concomitant]
  4. LEXIVA (FOSAMPREM=NAVIR CALCIUM) (FOSAMPRNAVIR CALCIUM) [Concomitant]
  5. ZYLORIC (ALLPURINOL) (ALLOPURINOL) [Concomitant]
  6. ZOLPIDEM (ZOLPIDEM) ZOPLIDEM) [Concomitant]
  7. DILAUDID (HYDROMORPHONE HYDEOCHLORIDE)  (HDROMORPHONE HYDROCHLORIDE) [Concomitant]
  8. NEURONTIN (GABAPENTIN) (GABAPATIN) [Concomitant]
  9. ZOMETA (ZOLEDRONIC ACID) (ZOLEDRONIC ACID) [Concomitant]
  10. ALOXI (PALONOSETRON HYDROCHLORIDE PALONOSETRON HDROCHLORIDE) [Concomitant]
  11. MEPRON (METHYLPREDNSONE) (METHRPOREDISONE) [Concomitant]

REACTIONS (21)
  - Sinus congestion [None]
  - Sneezing [None]
  - Cough [None]
  - Haemoglobin decreased [None]
  - Nasopharyngitis [None]
  - Upper respiratory tract infection [None]
  - Dehydration [None]
  - Fatigue [None]
  - Blister [None]
  - Pain in extremity [None]
  - Pain in extremity [None]
  - Ocular hyperaemia [None]
  - Bone neoplasm [None]
  - Local swelling [None]
  - Burning sensation [None]
  - Gait disturbance [None]
  - Feeling cold [None]
  - Skin reaction [None]
  - Erythema of eyelid [None]
  - Drug hypersensitivity [None]
  - Thermal burn [None]
